FAERS Safety Report 6377164-6 (Version None)
Quarter: 2009Q3

REPORT INFORMATION
  Report Type: 
  Country: None (occurrence: None)
  Receive Date: 20090925
  Receipt Date: 20090915
  Transmission Date: 20100115
  Serious: Yes (Hospitalization, Disabling)
  Sender: FDA-Public Use
  Company Number: JP-ELI_LILLY_AND_COMPANY-JP200909002443

PATIENT
  Age: 70 Year
  Sex: Male

DRUGS (7)
  1. ALIMTA [Suspect]
     Indication: NON-SMALL CELL LUNG CANCER STAGE IIIA
     Dosage: 790 MG, OTHER
     Route: 042
     Dates: start: 20090826, end: 20090826
  2. PANVITAN [Concomitant]
     Dosage: 1 G, DAILY (1/D)
     Route: 048
     Dates: start: 20090814, end: 20090829
  3. HYDROXOCOBALAMIN ACETATE [Concomitant]
     Dosage: 1 MG, OTHER
     Route: 030
     Dates: start: 20090814
  4. ADALAT [Concomitant]
     Indication: HYPERTENSION
     Dosage: 40 MG, DAILY (1/D)
     Route: 048
  5. MICARDIS [Concomitant]
     Indication: HYPERTENSION
     Dosage: 40 MG, DAILY (1/D)
     Route: 048
  6. ARGATROBAN [Concomitant]
     Dosage: 60 MG, DAILY (1/D)
     Route: 042
     Dates: start: 20090830, end: 20090831
  7. FOLIAMIN [Concomitant]
     Dosage: 15 MG, UNK
     Route: 058
     Dates: start: 20090830

REACTIONS (3)
  - CEREBRAL INFARCTION [None]
  - DRUG INTERACTION [None]
  - PLATELET COUNT DECREASED [None]
